FAERS Safety Report 16999421 (Version 1)
Quarter: 2019Q4

REPORT INFORMATION
  Report Type: Spontaneous
  Country: US (occurrence: US)
  Receive Date: 20191106
  Receipt Date: 20191106
  Transmission Date: 20200122
  Serious: Yes (Other)
  Sender: FDA-Public Use
  Company Number: US-PFIZER INC-2019274070

PATIENT
  Age: 72 Year
  Sex: Female

DRUGS (2)
  1. IBRANCE [Suspect]
     Active Substance: PALBOCICLIB
     Indication: BREAST CANCER FEMALE
     Dosage: 125 MG, UNK
  2. IBRANCE [Suspect]
     Active Substance: PALBOCICLIB
     Dosage: 100 MG, CYCLIC (21 DAYS WITH 7 DAYS REST)
     Dates: start: 20190808

REACTIONS (6)
  - Muscle spasms [Unknown]
  - Neutropenia [Unknown]
  - Lip erythema [Unknown]
  - Headache [Unknown]
  - Lip exfoliation [Unknown]
  - Fatigue [Unknown]
